FAERS Safety Report 8341398-1 (Version None)
Quarter: 2012Q2

REPORT INFORMATION
  Report Type: 
  Country: None (occurrence: None)
  Receive Date: 20120507
  Receipt Date: 20120502
  Transmission Date: 20120825
  Serious: Yes (Death, Hospitalization)
  Sender: FDA-Public Use
  Company Number: IT-PFIZER INC-2012089851

PATIENT
  Age: 72 Year
  Sex: Male

DRUGS (3)
  1. CYCLOPHOSPHAMIDE [Suspect]
     Dosage: 1000 MG, CYCLIC
     Route: 042
     Dates: start: 20120210, end: 20120330
  2. CYCLOPHOSPHAMIDE [Suspect]
     Indication: CHRONIC LYMPHOCYTIC LEUKAEMIA
     Dosage: UNK
     Dates: start: 20080101
  3. DOXORUBICIN HYDROCHLORIDE [Suspect]
     Indication: CHRONIC LYMPHOCYTIC LEUKAEMIA
     Dosage: 50 MG, CYCLIC
     Route: 042
     Dates: start: 20120210, end: 20120330

REACTIONS (3)
  - PANCYTOPENIA [None]
  - TOXIC EPIDERMAL NECROLYSIS [None]
  - ABDOMINAL SYMPTOM [None]
